FAERS Safety Report 19122081 (Version 1)
Quarter: 2021Q2

REPORT INFORMATION
  Report Type: Spontaneous
  Country: US (occurrence: US)
  Receive Date: 20210412
  Receipt Date: 20210412
  Transmission Date: 20210717
  Serious: Yes (Other)
  Sender: FDA-Public Use
  Company Number: US-GLAXOSMITHKLINE-US2021077585

PATIENT
  Age: 75 Year
  Sex: Female

DRUGS (3)
  1. VENTOLIN HFA [Suspect]
     Active Substance: ALBUTEROL SULFATE
     Indication: ASTHMA
     Dosage: 2 PUFF(S), Z, EVERY 4 HOURS AS NEEDED
     Route: 055
     Dates: start: 201401
  2. VENTOLIN HFA [Suspect]
     Active Substance: ALBUTEROL SULFATE
     Indication: WHEEZING
  3. FLOVENT HFA [Concomitant]
     Active Substance: FLUTICASONE PROPIONATE
     Indication: ASTHMA
     Dosage: 2 PUFF(S), BID
     Route: 055
     Dates: start: 201401

REACTIONS (5)
  - Cor pulmonale [Unknown]
  - Product use in unapproved indication [Unknown]
  - Arthritis [Unknown]
  - Arthralgia [Unknown]
  - Limb operation [Recovered/Resolved with Sequelae]

NARRATIVE: CASE EVENT DATE: 202011
